FAERS Safety Report 10176213 (Version 1)
Quarter: 2014Q2

REPORT INFORMATION
  Report Type: Spontaneous
  Country: GB (occurrence: GB)
  Receive Date: 20140516
  Receipt Date: 20140516
  Transmission Date: 20141212
  Serious: Yes (Hospitalization)
  Sender: FDA-Public Use
  Company Number: GB-UCBSA-121042

PATIENT
  Age: 70 Year
  Sex: Female

DRUGS (6)
  1. LEVETIRACETAM [Suspect]
     Dosage: UNKNOWN DOSE
  2. EPILEM [Suspect]
     Dosage: FOR 4 WEEKS
  3. EPILEM [Suspect]
     Dosage: FOR 1 WEEK
  4. EPILEM [Suspect]
     Dosage: FOR 9 DAYS
  5. CLOBAZAM [Concomitant]
  6. SERTRALINE [Concomitant]

REACTIONS (7)
  - Urinary tract infection [Unknown]
  - Cerebral haemorrhage [Unknown]
  - Pyrexia [Unknown]
  - Confusional state [Unknown]
  - Somnolence [Unknown]
  - Fall [Unknown]
  - Asthenia [Unknown]
